FAERS Safety Report 25797841 (Version 3)
Quarter: 2025Q3

REPORT INFORMATION
  Report Type: Report from Study
  Country: US (occurrence: US)
  Receive Date: 20250912
  Receipt Date: 20250925
  Transmission Date: 20251021
  Serious: Yes (Hospitalization, Other)
  Sender: UCB
  Company Number: US-UCBSA-2025055824

PATIENT
  Sex: Female

DRUGS (4)
  1. BRIVARACETAM [Suspect]
     Active Substance: BRIVARACETAM
     Indication: Seizure
     Dosage: 100 MILLIGRAM, 2X/DAY (BID) (50MG TWICE IN THE MORNING AND TWO AT NIGHT TIME)
  2. VIMPAT [Suspect]
     Active Substance: LACOSAMIDE
     Indication: Seizure
     Dates: start: 2008
  3. VIMPAT [Suspect]
     Active Substance: LACOSAMIDE
     Indication: Epilepsy
     Dosage: 150 MILLIGRAM, 2X/DAY (BID) (150MG TWICE A DAY, HALF A PILL IN THE MORNING AND HALF A PILL AT NIGHT.
     Dates: end: 20250828
  4. VIMPAT [Suspect]
     Active Substance: LACOSAMIDE
     Dosage: 75 MILLIGRAM, 2X/DAY (BID)
     Dates: start: 2025

REACTIONS (13)
  - Hospitalisation [Recovered/Resolved]
  - Seizure [Unknown]
  - Coma [Unknown]
  - Skin cancer [Unknown]
  - Blood sodium decreased [Unknown]
  - Balance disorder [Unknown]
  - Fall [Unknown]
  - Peripheral swelling [Unknown]
  - Feeling drunk [Unknown]
  - Blood pressure increased [Unknown]
  - Anxiety [Unknown]
  - Insomnia [Unknown]
  - Product use issue [Unknown]

NARRATIVE: CASE EVENT DATE: 20240101
